FAERS Safety Report 7792176-3 (Version None)
Quarter: 2011Q4

REPORT INFORMATION
  Report Type: 
  Country: None (occurrence: None)
  Receive Date: 20111003
  Receipt Date: 20111003
  Transmission Date: 20120403
  Serious: No
  Sender: FDA-Public Use
  Company Number: None

PATIENT
  Sex: Female
  Weight: 128.6 kg

DRUGS (25)
  1. MAGNESIUM OXIDE [Concomitant]
     Route: 048
  2. KLOR-CON [Concomitant]
     Route: 048
  3. VICTOZA [Concomitant]
     Route: 048
  4. ALTACE [Concomitant]
     Route: 048
  5. LIPITOR [Concomitant]
     Route: 048
  6. VICTOZA [Suspect]
     Indication: TYPE 2 DIABETES MELLITUS
     Dosage: 1.2MG
     Route: 058
     Dates: start: 20110601, end: 20110901
  7. FISH OIL [Concomitant]
     Route: 048
  8. COUMADIN [Concomitant]
     Route: 048
  9. DIGOXIN [Concomitant]
     Route: 048
  10. LEXAPRO [Concomitant]
     Route: 048
  11. TYLENOL-500 [Concomitant]
     Route: 048
  12. VITAMIN C TR [Concomitant]
     Route: 048
  13. OYSTER SHELL CALCIUM [Concomitant]
     Route: 048
  14. LORAZEPAM [Concomitant]
  15. SOTALOL HCL [Concomitant]
     Route: 048
  16. FUROSEMIDE [Concomitant]
     Route: 048
  17. ALTACE [Concomitant]
     Route: 048
  18. HUMULIN R [Concomitant]
     Route: 058
  19. ASPIRIN [Concomitant]
     Route: 048
  20. FOLIC ACID [Concomitant]
     Route: 048
  21. COUMADIN [Concomitant]
     Route: 048
  22. COLCHICINE [Concomitant]
     Route: 048
  23. METOPROLOL SUCCINATE EXTENDED RELEASE [Concomitant]
     Route: 048
  24. ALPRAZOLAM [Concomitant]
     Route: 048
  25. INSPRA [Concomitant]
     Route: 048

REACTIONS (1)
  - PALPITATIONS [None]
